FAERS Safety Report 14926608 (Version 2)
Quarter: 2018Q2

REPORT INFORMATION
  Report Type: Spontaneous
  Country: ES (occurrence: ES)
  Receive Date: 20180523
  Receipt Date: 20180529
  Transmission Date: 20180711
  Serious: Yes (Other)
  Sender: FDA-Public Use
  Company Number: ES-ASTRAZENECA-2018SE65519

PATIENT
  Age: 90 Year
  Sex: Female

DRUGS (1)
  1. FULVESTRANT. [Suspect]
     Active Substance: FULVESTRANT
     Indication: BREAST CANCER METASTATIC
     Route: 030
     Dates: start: 201211

REACTIONS (2)
  - Malignant neoplasm progression [Unknown]
  - Breast cancer metastatic [Unknown]
